FAERS Safety Report 6962442-X (Version None)
Quarter: 2010Q3

REPORT INFORMATION
  Report Type: 
  Country: None (occurrence: None)
  Receive Date: 20100823
  Receipt Date: 20100720
  Transmission Date: 20110219
  Serious: No
  Sender: FDA-Public Use
  Company Number: 015768

PATIENT
  Sex: Female
  Weight: 45.4 kg

DRUGS (4)
  1. CIMZIA [Suspect]
     Indication: CROHN'S DISEASE
     Dosage: (400 MG 1X/4 WEEKS SUBCUTANEOUS)
     Route: 058
     Dates: start: 20100712
  2. METHOTREXATE [Concomitant]
  3. VITAMIN B-12 [Concomitant]
  4. WELCHOL [Concomitant]

REACTIONS (4)
  - ARTHRALGIA [None]
  - INJECTION SITE PAIN [None]
  - RASH ERYTHEMATOUS [None]
  - SWELLING [None]
